FAERS Safety Report 12930087 (Version 1)
Quarter: 2016Q4

REPORT INFORMATION
  Report Type: Spontaneous
  Country: US (occurrence: US)
  Receive Date: 20161110
  Receipt Date: 20161110
  Transmission Date: 20170207
  Serious: Yes (Hospitalization)
  Sender: FDA-Public Use
  Company Number: US-NOVOPROD-517771

PATIENT
  Age: 70 Year
  Sex: Male

DRUGS (1)
  1. NOVOLOG MIX 70/30 [Suspect]
     Active Substance: INSULIN ASPART
     Indication: DIABETES MELLITUS
     Dosage: 70 U, QD
     Route: 058

REACTIONS (3)
  - Fall [Unknown]
  - Blood glucose increased [Recovered/Resolved]
  - Blood glucose fluctuation [Recovered/Resolved]
